FAERS Safety Report 11380942 (Version 2)
Quarter: 2015Q4

REPORT INFORMATION
  Report Type: Spontaneous
  Country: US (occurrence: US)
  Receive Date: 20150814
  Receipt Date: 20151113
  Transmission Date: 20160304
  Serious: No
  Sender: FDA-Public Use
  Company Number: US-JNJFOC-20150802310

PATIENT
  Age: 68 Year
  Sex: Male
  Weight: 115.67 kg

DRUGS (1)
  1. SIMPONI [Suspect]
     Active Substance: GOLIMUMAB
     Indication: ANKYLOSING SPONDYLITIS
     Route: 058
     Dates: start: 20090801

REACTIONS (5)
  - Back pain [Recovered/Resolved]
  - Therapeutic response decreased [Recovered/Resolved]
  - Device malfunction [Unknown]
  - Accidental exposure to product [Recovered/Resolved]
  - Arthralgia [Recovered/Resolved]

NARRATIVE: CASE EVENT DATE: 201507
